FAERS Safety Report 23701544 (Version 3)
Quarter: 2024Q2

REPORT INFORMATION
  Report Type: Spontaneous
  Country: US (occurrence: US)
  Receive Date: 20240403
  Receipt Date: 20240606
  Transmission Date: 20240715
  Serious: Yes (Hospitalization)
  Sender: FDA-Public Use
  Company Number: US-SA-SAC20240402000155

PATIENT
  Age: 28 Year
  Sex: Male

DRUGS (11)
  1. ELOCTATE [Suspect]
     Active Substance: EFMOROCTOCOG ALFA
     Indication: Factor VIII deficiency
     Dosage: 500 U, QD (DAILY FOR 7 DAYS)
     Route: 042
     Dates: start: 201212
  2. ELOCTATE [Suspect]
     Active Substance: EFMOROCTOCOG ALFA
     Indication: Factor VIII deficiency
     Dosage: 500 U, QD (DAILY FOR 7 DAYS)
     Route: 042
     Dates: start: 201212
  3. ELOCTATE [Suspect]
     Active Substance: EFMOROCTOCOG ALFA
     Dosage: 1500 U, QD (DAILY FOR 7 DAYS)
     Route: 042
     Dates: start: 201212
  4. ELOCTATE [Suspect]
     Active Substance: EFMOROCTOCOG ALFA
     Dosage: 1500 U, QD (DAILY FOR 7 DAYS)
     Route: 042
     Dates: start: 201212
  5. ELOCTATE [Suspect]
     Active Substance: EFMOROCTOCOG ALFA
     Dosage: 4000 U, PRN
     Route: 042
     Dates: start: 202212
  6. ELOCTATE [Suspect]
     Active Substance: EFMOROCTOCOG ALFA
     Dosage: 4000 U, PRN
     Route: 042
     Dates: start: 202212
  7. ELOCTATE [Suspect]
     Active Substance: EFMOROCTOCOG ALFA
     Dosage: 1000 U, QD (DAILY FOR 7 DAYS)
     Route: 042
     Dates: start: 202212
  8. ELOCTATE [Suspect]
     Active Substance: EFMOROCTOCOG ALFA
     Dosage: 1000 U, QD (DAILY FOR 7 DAYS)
     Route: 042
     Dates: start: 202212
  9. ELOCTATE [Suspect]
     Active Substance: EFMOROCTOCOG ALFA
     Dosage: 500 U, QD (DAILY FOR 7 DAYS)
     Route: 042
     Dates: start: 202212
  10. ELOCTATE [Suspect]
     Active Substance: EFMOROCTOCOG ALFA
     Dosage: 500 U, QD (DAILY FOR 7 DAYS)
     Route: 042
     Dates: start: 202212
  11. HEMLIBRA [Concomitant]
     Active Substance: EMICIZUMAB-KXWH
     Indication: Prophylaxis
     Dosage: UNK

REACTIONS (2)
  - Haemorrhage [Not Recovered/Not Resolved]
  - Haemorrhage [Not Recovered/Not Resolved]

NARRATIVE: CASE EVENT DATE: 20240319
